FAERS Safety Report 10231796 (Version 1)
Quarter: 2014Q2

REPORT INFORMATION
  Report Type: Report from Study
  Country: EE (occurrence: EE)
  Receive Date: 20140612
  Receipt Date: 20140612
  Transmission Date: 20141212
  Serious: Yes (Other)
  Sender: FDA-Public Use
  Company Number: EE-ROCHE-1416461

PATIENT
  Age: 51 Year
  Sex: Male

DRUGS (8)
  1. PEGASYS [Suspect]
     Indication: CHRONIC HEPATITIS C
     Route: 058
     Dates: start: 20110520, end: 20110602
  2. PEGASYS [Suspect]
     Route: 058
     Dates: start: 20110602, end: 20110624
  3. PEGASYS [Suspect]
     Route: 058
     Dates: start: 20110624, end: 20110711
  4. COPEGUS [Suspect]
     Indication: CHRONIC HEPATITIS C
     Route: 048
     Dates: start: 20110520, end: 20110617
  5. COPEGUS [Suspect]
     Route: 048
     Dates: start: 20110617, end: 20110707
  6. COPEGUS [Suspect]
     Route: 048
     Dates: start: 20110707, end: 20110711
  7. MEDROL [Concomitant]
     Route: 065
     Dates: start: 20110617, end: 20110624
  8. MEDROL [Concomitant]
     Route: 065
     Dates: start: 20110624

REACTIONS (2)
  - Pancytopenia [Recovering/Resolving]
  - Epistaxis [Unknown]
